FAERS Safety Report 20020846 (Version 1)
Quarter: 2021Q4

REPORT INFORMATION
  Report Type: Report from Study
  Country: BR (occurrence: BR)
  Receive Date: 20211101
  Receipt Date: 20211101
  Transmission Date: 20220303
  Serious: Yes (Death, Other)
  Sender: FDA-Public Use
  Company Number: BR-NOVARTISPH-NVSC2021BR249052

PATIENT
  Age: 72 Year
  Sex: Female

DRUGS (1)
  1. COSENTYX [Suspect]
     Active Substance: SECUKINUMAB
     Indication: Psoriasis
     Dosage: 300 MG
     Route: 065
     Dates: start: 20190610, end: 20210915

REACTIONS (6)
  - Urosepsis [Fatal]
  - Urinary tract infection [Fatal]
  - Acute kidney injury [Fatal]
  - Spinal fracture [Unknown]
  - Spinal pain [Unknown]
  - Fall [Unknown]

NARRATIVE: CASE EVENT DATE: 20211025
